FAERS Safety Report 13518805 (Version 1)
Quarter: 2017Q2

REPORT INFORMATION
  Report Type: Spontaneous
  Country: US (occurrence: US)
  Receive Date: 20170505
  Receipt Date: 20170505
  Transmission Date: 20170830
  Serious: Yes (Hospitalization, Other)
  Sender: FDA-Public Use
  Company Number: US-PFIZER INC-2017191216

PATIENT
  Age: 6 Month
  Sex: Male
  Weight: 4.7 kg

DRUGS (17)
  1. DEXMEDETOMIDINE HYDROCHLORIDE. [Suspect]
     Active Substance: DEXMEDETOMIDINE HYDROCHLORIDE
     Dosage: 1 BOLUS, UNK
  2. FENTANYL CITRATE. [Suspect]
     Active Substance: FENTANYL CITRATE
     Dosage: 3 BOLUS DOSES, UNK
  3. MORPHINE SULFATE. [Suspect]
     Active Substance: MORPHINE SULFATE
     Indication: AGITATION
     Dosage: 50 MG/KG, AS NEEDED (BOLUS DOSES)
     Route: 042
  4. DIAZEPAM. [Suspect]
     Active Substance: DIAZEPAM
     Indication: AGITATION
     Dosage: 0.1 MG/KG, UNK
  5. LORAZEPAM. [Suspect]
     Active Substance: LORAZEPAM
     Indication: AGITATION
     Dosage: 0.1 MG/KG, AS NEEDED (BOLUS DOSES)
     Route: 042
  6. MIDAZOLAM [Suspect]
     Active Substance: MIDAZOLAM HYDROCHLORIDE
     Indication: AGITATION
     Dosage: 1 MCG/KG/MIN
     Route: 041
  7. MIDAZOLAM [Suspect]
     Active Substance: MIDAZOLAM HYDROCHLORIDE
     Dosage: 19 BOLUSES IN 24HR PERIOD
  8. DEXMEDETOMIDINE HYDROCHLORIDE. [Suspect]
     Active Substance: DEXMEDETOMIDINE HYDROCHLORIDE
     Dosage: 19 BOLUSES IN 24HR PERIOD
  9. GABAPENTIN. [Concomitant]
     Active Substance: GABAPENTIN
     Indication: AGITATION
     Dosage: 5 MG/KG, EVERY 8 HOURS
  10. FENTANYL CITRATE. [Suspect]
     Active Substance: FENTANYL CITRATE
     Dosage: 19 BOLUSES IN 24HR PERIOD
  11. MIDAZOLAM [Suspect]
     Active Substance: MIDAZOLAM HYDROCHLORIDE
     Dosage: 1 BOLUS DOSE, UNK
  12. METHADONE [Suspect]
     Active Substance: METHADONE HYDROCHLORIDE
     Indication: AGITATION
     Dosage: 0.15 MG/KG, EVERY 6 HOURS
  13. DIAZEPAM. [Suspect]
     Active Substance: DIAZEPAM
     Dosage: 0.15 MG/KG, EVERY 6 HOURS
  14. PHENOBARBITAL. [Suspect]
     Active Substance: PHENOBARBITAL
     Indication: AGITATION
     Dosage: 5 MG/KG/DAY
  15. FENTANYL CITRATE. [Suspect]
     Active Substance: FENTANYL CITRATE
     Indication: AGITATION
     Dosage: 1 MCG/KG/HR
     Route: 041
  16. MIDAZOLAM [Suspect]
     Active Substance: MIDAZOLAM HYDROCHLORIDE
     Dosage: 3 MCG/KG/MIN
     Route: 041
  17. DEXMEDETOMIDINE HYDROCHLORIDE. [Suspect]
     Active Substance: DEXMEDETOMIDINE HYDROCHLORIDE
     Indication: AGITATION
     Dosage: 2 MCG/KG/HR
     Route: 041

REACTIONS (1)
  - Delirium [Recovered/Resolved]
